FAERS Safety Report 5255773-5 (Version None)
Quarter: 2007Q1

REPORT INFORMATION
  Report Type: 
  Country: None (occurrence: None)
  Receive Date: 20070301
  Receipt Date: 20070215
  Transmission Date: 20070707
  Serious: Yes (Hospitalization, Other)
  Sender: FDA-Public Use
  Company Number: 100#08#2007-00592

PATIENT
  Age: 46 Year
  Sex: Male

DRUGS (2)
  1. CITALOPRAM HYDROBROMIDE [Suspect]
     Indication: DRUG USE FOR UNKNOWN INDICATION
     Dosage: 40 MG
  2. NIGHT AND DAY (CAPSULES) (DEXTROMETHORPHAN) [Suspect]
     Indication: NASOPHARYNGITIS
     Dosage: FOR 2 OR 3 DAYS

REACTIONS (7)
  - ABDOMINAL TENDERNESS [None]
  - BLOOD PRESSURE INCREASED [None]
  - DRUG INTERACTION [None]
  - HEADACHE [None]
  - NO THERAPEUTIC RESPONSE [None]
  - SEPSIS [None]
  - SEROTONIN SYNDROME [None]
